FAERS Safety Report 8919402 (Version 1)
Quarter: 2012Q4

REPORT INFORMATION
  Report Type: 
  Country: US (occurrence: US)
  Receive Date: 20121121
  Receipt Date: 20121121
  Transmission Date: 20130627
  Serious: No
  Sender: FDA-Public Use
  Company Number: US-PFIZER INC-2012282849

PATIENT
  Age: 59 Year
  Sex: Male
  Weight: 97.51 kg

DRUGS (6)
  1. XIAFLEX [Suspect]
     Indication: DUPUYTREN^S CONTRACTURE
     Dosage: 0.58 mg, 1x/day
     Route: 026
     Dates: start: 20121016, end: 20121016
  2. LIDOCAINE HCL [Suspect]
     Dosage: UNK
     Route: 051
     Dates: start: 20101018, end: 20101018
  3. MARCAINE [Suspect]
     Dosage: UNK
     Route: 051
     Dates: start: 20121018, end: 20121018
  4. MULTIVITAMINS [Concomitant]
     Dosage: UNK
  5. OXYCODONE [Concomitant]
     Dosage: 5 mg, Unk
     Route: 048
  6. VOLTAREN [Concomitant]
     Route: 061

REACTIONS (1)
  - Drug ineffective [Not Recovered/Not Resolved]
